FAERS Safety Report 8770784 (Version 2)
Quarter: 2013Q2

REPORT INFORMATION
  Report Type: Report from Study
  Country: JP (occurrence: JP)
  Receive Date: 20120906
  Receipt Date: 20130510
  Transmission Date: 20140414
  Serious: Yes (Hospitalization)
  Sender: FDA-Public Use
  Company Number: JP-009507513-1209JPN001416

PATIENT
  Age: 60 Year
  Sex: Female
  Weight: 60 kg

DRUGS (11)
  1. PEGINTRON [Suspect]
     Indication: CHRONIC HEPATITIS C
     Dosage: 1.67 MICROGRAM PER KILOGRAM, QW
     Route: 058
     Dates: start: 20120711, end: 20120815
  2. REBETOL [Suspect]
     Indication: CHRONIC HEPATITIS C
     Dosage: 600 MG, QD
     Route: 048
     Dates: start: 20120711, end: 20120718
  3. REBETOL [Suspect]
     Dosage: 400 MG, QD
     Route: 048
     Dates: start: 20120719, end: 20120815
  4. TELAVIC [Suspect]
     Indication: CHRONIC HEPATITIS C
     Dosage: 2250 MG, QD
     Route: 048
     Dates: start: 20120711, end: 20120713
  5. TELAVIC [Suspect]
     Dosage: 1500 MG, QD
     Route: 048
     Dates: start: 20120714, end: 20120815
  6. AVAPRO [Concomitant]
     Indication: HYPERTENSION
     Dosage: 100 MG, QD, POR
     Route: 048
  7. AMLODIPINE [Concomitant]
     Indication: HYPERTENSION
     Dosage: 5 MG, QD, POR
     Route: 048
  8. FLUITRAN [Concomitant]
     Indication: HYPERTENSION
     Dosage: 1 MG, QD, POR
     Route: 048
  9. OMEPRAL [Concomitant]
     Indication: GASTROOESOPHAGEAL REFLUX DISEASE
     Dosage: 10 MG, QD, POR
     Route: 048
  10. DEPAS [Concomitant]
     Indication: INSOMNIA
     Dosage: 0.5 MG, QD
     Route: 048
  11. LOXONIN [Concomitant]
     Indication: PROPHYLAXIS
     Dosage: 60 MG PER DAY, AS NEEDED, POR
     Route: 048
     Dates: start: 20120711

REACTIONS (2)
  - Decreased appetite [Recovered/Resolved]
  - Nausea [Recovered/Resolved]
